FAERS Safety Report 11645443 (Version 2)
Quarter: 2016Q1

REPORT INFORMATION
  Report Type: Report from Study
  Country: MX (occurrence: MX)
  Receive Date: 20151020
  Receipt Date: 20160201
  Transmission Date: 20160525
  Serious: Yes (Death, Other)
  Sender: FDA-Public Use
  Company Number: PHHY2015MX134934

PATIENT
  Age: 81 Year
  Sex: Male

DRUGS (6)
  1. EXELON PATCH [Suspect]
     Active Substance: RIVASTIGMINE
     Indication: CEREBRAL INFARCTION
     Dosage: 1 AND 3/4 PATCH
     Route: 062
  2. NORFENON [Concomitant]
     Indication: PRODUCT USED FOR UNKNOWN INDICATION
     Route: 065
  3. EXELON PATCH [Suspect]
     Active Substance: RIVASTIGMINE
     Indication: SUBDURAL EFFUSION
     Dosage: 1 AND 1/2 PATCH
     Route: 062
     Dates: start: 201506
  4. RISPERIDONE. [Concomitant]
     Active Substance: RISPERIDONE
     Indication: PRODUCT USED FOR UNKNOWN INDICATION
     Route: 065
  5. TEMERIT [Concomitant]
     Active Substance: NEBIVOLOL
     Indication: PRODUCT USED FOR UNKNOWN INDICATION
     Route: 065
  6. EXELON PATCH [Suspect]
     Active Substance: RIVASTIGMINE
     Dosage: PATCH 5 (CM2), 1 AND 1/2 PATCH
     Route: 062

REACTIONS (10)
  - Death [Fatal]
  - Product use issue [Recovered/Resolved]
  - Arrhythmia [Unknown]
  - Eating disorder [Unknown]
  - Condition aggravated [Not Recovered/Not Resolved]
  - Memory impairment [Not Recovered/Not Resolved]
  - Vision blurred [Unknown]
  - Drug prescribing error [Recovered/Resolved]
  - Drug administration error [Recovered/Resolved]
  - Pulmonary thrombosis [Unknown]

NARRATIVE: CASE EVENT DATE: 201506
